FAERS Safety Report 7549571-7 (Version None)
Quarter: 2011Q2

REPORT INFORMATION
  Report Type: 
  Country: None (occurrence: None)
  Receive Date: 20110615
  Receipt Date: 20101202
  Transmission Date: 20111010
  Serious: Yes (Other)
  Sender: FDA-Public Use
  Company Number: A0899140A

PATIENT
  Sex: Female

DRUGS (1)
  1. AVANDIA [Suspect]
     Indication: DIABETES MELLITUS
     Route: 048

REACTIONS (8)
  - LUNG DISORDER [None]
  - BONE DISORDER [None]
  - CARDIAC OPERATION [None]
  - MUSCLE ATROPHY [None]
  - CORONARY ARTERY BYPASS [None]
  - RIB DEFORMITY [None]
  - CARDIAC DISORDER [None]
  - GASTRIC DISORDER [None]
